FAERS Safety Report 10011814 (Version 1)
Quarter: 2014Q1

REPORT INFORMATION
  Report Type: Spontaneous
  Country: FR (occurrence: FR)
  Receive Date: 20140314
  Receipt Date: 20140314
  Transmission Date: 20141002
  Serious: Yes (Other)
  Sender: FDA-Public Use
  Company Number: FR-GE HEALTHCARE MEDICAL DIAGNOSTICS-OMPQ-PR-1403S-0226

PATIENT
  Age: 69 Year
  Sex: Male

DRUGS (12)
  1. OMNIPAQUE [Suspect]
     Indication: PRODUCT USED FOR UNKNOWN INDICATION
     Dosage: DOSE NOT REPORTED
     Route: 042
     Dates: start: 20140209, end: 20140209
  2. OMNIPAQUE [Suspect]
     Indication: DIAGNOSTIC PROCEDURE
  3. AMOXICILLINE [Suspect]
     Route: 042
     Dates: start: 20140208
  4. ROCEPHINE [Concomitant]
     Route: 042
     Dates: start: 20140208
  5. CALCIPARINE [Concomitant]
     Dates: start: 20140207, end: 20140212
  6. PREVISCAN [Concomitant]
  7. TAMOXIFENE [Concomitant]
  8. PARACETAMOL [Concomitant]
  9. LANTUS [Concomitant]
  10. NOVORAPID [Concomitant]
  11. PULMICORT [Concomitant]
  12. ONBREZ [Concomitant]

REACTIONS (1)
  - Renal failure acute [Recovered/Resolved]
